FAERS Safety Report 18826665 (Version 3)
Quarter: 2021Q1

REPORT INFORMATION
  Report Type: Report from Study
  Country: BR (occurrence: BR)
  Receive Date: 20210202
  Receipt Date: 20210331
  Transmission Date: 20210419
  Serious: Yes (Hospitalization, Other)
  Sender: FDA-Public Use
  Company Number: BR-TAKEDA-2021TUS005903

PATIENT
  Age: 72 Year
  Sex: Female

DRUGS (6)
  1. PREDNISONE. [Suspect]
     Active Substance: PREDNISONE
     Indication: CROHN^S DISEASE
     Dosage: UNK
     Route: 065
  2. DEPURA [Concomitant]
     Active Substance: CHOLECALCIFEROL
     Indication: OSTEOPOROSIS
     Dosage: 500 MILLIGRAM
  3. MIRTAZAPINE. [Concomitant]
     Active Substance: MIRTAZAPINE
     Dosage: UNK
  4. SULFASALAZINE. [Concomitant]
     Active Substance: SULFASALAZINE
     Dosage: UNK
  5. VEDOLIZUMAB [Suspect]
     Active Substance: VEDOLIZUMAB
     Indication: CROHN^S DISEASE
     Dosage: 300 MILLIGRAM
     Route: 042
     Dates: start: 202006
  6. OSSEOPROT [Concomitant]
     Active Substance: CALCIUM CITRATE MALATE\VITAMIN D
     Indication: OSTEOPOROSIS
     Dosage: UNK

REACTIONS (8)
  - Drug effect less than expected [Unknown]
  - Gastrointestinal haemorrhage [Unknown]
  - Chills [Unknown]
  - Pelvic pain [Unknown]
  - Swelling [Unknown]
  - Crohn^s disease [Unknown]
  - Anaemia [Unknown]
  - Dizziness [Unknown]

NARRATIVE: CASE EVENT DATE: 202007
